FAERS Safety Report 14956433 (Version 2)
Quarter: 2018Q3

REPORT INFORMATION
  Report Type: Spontaneous
  Country: US (occurrence: US)
  Receive Date: 20180531
  Receipt Date: 20180709
  Transmission Date: 20181010
  Serious: No
  Sender: FDA-Public Use
  Company Number: US-PFIZER INC-2018221752

PATIENT
  Age: 21 Year
  Sex: Male

DRUGS (1)
  1. TESTOSTERONE CIPIONATE [Suspect]
     Active Substance: TESTOSTERONE
     Dosage: 130 MG, EVERY 2 WEEKS
     Route: 058
     Dates: start: 201707

REACTIONS (4)
  - Irritability [Unknown]
  - Product use issue [Unknown]
  - Fatigue [Unknown]
  - Drug effect incomplete [Unknown]
